FAERS Safety Report 16652660 (Version 1)
Quarter: 2019Q3

REPORT INFORMATION
  Report Type: Spontaneous
  Country: US (occurrence: US)
  Receive Date: 20190731
  Receipt Date: 20190731
  Transmission Date: 20191004
  Serious: Yes (Hospitalization)
  Sender: FDA-Public Use
  Company Number: None

PATIENT
  Sex: Female

DRUGS (8)
  1. PREDNISONE. [Concomitant]
     Active Substance: PREDNISONE
  2. OMEPRAZOLE. [Concomitant]
     Active Substance: OMEPRAZOLE
  3. ENBREL [Suspect]
     Active Substance: ETANERCEPT
     Indication: RHEUMATOID ARTHRITIS
     Dosage: ?          OTHER FREQUENCY:WEEKLY;?
     Route: 058
     Dates: start: 20180224, end: 20190730
  4. VITAMIN D [Concomitant]
     Active Substance: VITAMIN D NOS
  5. TIZANDINE [Concomitant]
     Active Substance: TIZANIDINE
  6. ROSYVASTATIN [Concomitant]
  7. LEVOTHYROXIN [Concomitant]
     Active Substance: LEVOTHYROXINE
  8. HYDROMORPHON [Concomitant]
     Active Substance: HYDROMORPHONE

REACTIONS (2)
  - Fibromyalgia [None]
  - Arthritis [None]
